FAERS Safety Report 24307137 (Version 5)
Quarter: 2024Q4

REPORT INFORMATION
  Report Type: Spontaneous
  Country: GR (occurrence: GR)
  Receive Date: 20240911
  Receipt Date: 20241113
  Transmission Date: 20250115
  Serious: No
  Sender: PFIZER
  Company Number: GR-PFIZER INC-PV202400117110

PATIENT
  Age: 16 Year
  Sex: Male
  Weight: 50 kg

DRUGS (1)
  1. GENOTROPIN [Suspect]
     Active Substance: SOMATROPIN
     Indication: Hypopituitarism
     Dosage: 9 MG, WEEKLY
     Route: 058
     Dates: start: 202407

REACTIONS (3)
  - Product communication issue [Unknown]
  - Product preparation issue [Unknown]
  - Device physical property issue [Unknown]
